FAERS Safety Report 17728289 (Version 1)
Quarter: 2020Q2

REPORT INFORMATION
  Report Type: Spontaneous
  Country: IT (occurrence: ES)
  Receive Date: 20200430
  Receipt Date: 20200430
  Transmission Date: 20200714
  Serious: Yes (Hospitalization, Other)
  Sender: FDA-Public Use
  Company Number: ES-GLAXOSMITHKLINE-ES2020069608

PATIENT
  Age: 30 Year
  Sex: Female

DRUGS (9)
  1. LORMETAZEPAM [Suspect]
     Active Substance: LORMETAZEPAM
     Indication: PERFORMANCE ENHANCING PRODUCT USE
  2. LORMETAZEPAM [Suspect]
     Active Substance: LORMETAZEPAM
     Indication: MYALGIA
  3. LORMETAZEPAM [Suspect]
     Active Substance: LORMETAZEPAM
     Indication: ANXIETY
     Dosage: 900 MG, QD 900 MILLIGRAM DAILY; MAXIMUM DAILY DOSE OF 18 VIALS (EACH VIAL OF 20ML CONTAINING 50MG OF
     Route: 048
  4. MELATONIN [Suspect]
     Active Substance: MELATONIN
     Indication: ANXIETY
     Dosage: UNK
     Route: 065
  5. SALBUTAMOL [Suspect]
     Active Substance: ALBUTEROL
     Indication: ARTHRALGIA
  6. LORMETAZEPAM [Suspect]
     Active Substance: LORMETAZEPAM
     Indication: ARTHRALGIA
  7. SALBUTAMOL [Suspect]
     Active Substance: ALBUTEROL
     Indication: MYALGIA
     Dosage: UNK
     Route: 065
  8. LORMETAZEPAM [Suspect]
     Active Substance: LORMETAZEPAM
     Indication: INSOMNIA
     Dosage: UNK STARTED USING AT THE AGE OF 19 YEARS
     Route: 048
  9. MELATONIN [Suspect]
     Active Substance: MELATONIN
     Indication: INSOMNIA

REACTIONS (6)
  - Drug abuse [Unknown]
  - Drug withdrawal convulsions [Recovered/Resolved]
  - Off label use [Unknown]
  - Drug dependence [Recovered/Resolved]
  - Overdose [Unknown]
  - Drug ineffective [Unknown]
